FAERS Safety Report 5202314-4 (Version None)
Quarter: 2007Q1

REPORT INFORMATION
  Report Type: 
  Country: None (occurrence: None)
  Receive Date: 20070109
  Receipt Date: 20070102
  Transmission Date: 20070707
  Serious: Yes (Hospitalization)
  Sender: FDA-Public Use
  Company Number: US-ELI_LILLY_AND_COMPANY-US200610003570

PATIENT
  Age: 55 Year
  Sex: Male

DRUGS (3)
  1. ESOMEPRAZOLE MAGNESIUM [Concomitant]
     Dosage: UNK, UNKNOWN
  2. ASPIRIN [Concomitant]
     Dosage: UNK, UNKNOWN
  3. CIALIS [Suspect]
     Indication: ERECTILE DYSFUNCTION
     Dosage: 20 MG, AS NEEDED
     Route: 048
     Dates: start: 20060412, end: 20060412

REACTIONS (7)
  - ANXIETY [None]
  - DIZZINESS [None]
  - DRUG TOXICITY [None]
  - FEELING ABNORMAL [None]
  - HEMIPARESIS [None]
  - HYPERHIDROSIS [None]
  - MEDICATION ERROR [None]
